FAERS Safety Report 14373707 (Version 1)
Quarter: 2018Q1

REPORT INFORMATION
  Report Type: Spontaneous
  Country: RU (occurrence: RU)
  Receive Date: 20180110
  Receipt Date: 20180110
  Transmission Date: 20180509
  Serious: Yes (Other)
  Sender: FDA-Public Use
  Company Number: RU-ASTRAZENECA-2018SE03115

PATIENT
  Age: 54 Year
  Sex: Male
  Weight: 60 kg

DRUGS (5)
  1. BRILINTA [Suspect]
     Active Substance: TICAGRELOR
     Indication: ANGINA UNSTABLE
     Route: 048
     Dates: start: 201701, end: 201710
  2. LASOLVAN [Concomitant]
     Active Substance: AMBROXOL HYDROCHLORIDE
     Dates: start: 201701
  3. AMLODIPIN [Concomitant]
     Active Substance: AMLODIPINE BESYLATE
     Dates: start: 201701
  4. THROMBO ASS [Concomitant]
     Active Substance: ASPIRIN
     Dates: start: 201701
  5. CONCOR [Concomitant]
     Active Substance: BISOPROLOL FUMARATE
     Dates: start: 201701

REACTIONS (1)
  - Vascular stent thrombosis [Not Recovered/Not Resolved]

NARRATIVE: CASE EVENT DATE: 201710
